FAERS Safety Report 10058221 (Version 1)
Quarter: 2014Q2

REPORT INFORMATION
  Report Type: Report from Study
  Country: AU (occurrence: AU)
  Receive Date: 20140404
  Receipt Date: 20140404
  Transmission Date: 20141212
  Serious: Yes (Other)
  Sender: FDA-Public Use
  Company Number: AU-ROCHE-1377109

PATIENT
  Age: 39 Year
  Sex: Female

DRUGS (8)
  1. ACTEMRA [Suspect]
     Indication: RHEUMATOID ARTHRITIS
     Route: 042
     Dates: start: 20111104
  2. PREDNISONE [Concomitant]
     Indication: RHEUMATOID ARTHRITIS
     Route: 048
  3. SALAZOPYRIN [Concomitant]
     Indication: RHEUMATOID ARTHRITIS
     Route: 048
  4. ARAVA [Concomitant]
     Indication: RHEUMATOID ARTHRITIS
     Dosage: 1 TAB MANE. ONGOING THERAPY
     Route: 048
  5. ATACAND PLUS [Concomitant]
     Indication: HYPERTENSION
     Dosage: 1 TAB MANE. ONGOING THERAPY
     Route: 048
  6. NAPROXEN SR [Concomitant]
     Indication: RHEUMATOID ARTHRITIS
     Dosage: MANE. ONGOING
     Route: 048
  7. NATRILIX [Concomitant]
     Indication: HYPERTENSION
     Dosage: 1 TAB MANE. ONGOING
     Route: 048
  8. METHOTREXATE [Concomitant]
     Indication: RHEUMATOID ARTHRITIS
     Route: 048

REACTIONS (1)
  - Foot fracture [Recovering/Resolving]
